FAERS Safety Report 21594303 (Version 4)
Quarter: 2024Q1

REPORT INFORMATION
  Report Type: Report from Study
  Country: US (occurrence: US)
  Receive Date: 20221115
  Receipt Date: 20240226
  Transmission Date: 20240410
  Serious: Yes (Other)
  Sender: FDA-Public Use
  Company Number: US-Zogenix International Limited, A wholly owned subsidiary of Zogenix, Inc.-2022ZX000111

PATIENT
  Age: 48 Year
  Sex: Female
  Weight: 57.596 kg

DRUGS (8)
  1. FINTEPLA [Suspect]
     Active Substance: FENFLURAMINE
     Indication: Severe myoclonic epilepsy of infancy
     Dosage: 13.2 MG/DAY
     Route: 048
     Dates: start: 20210904
  2. FINTEPLA [Suspect]
     Active Substance: FENFLURAMINE
     Dosage: 2 ML IN MORNING, 2 ML AT NOON, AND 3 ML AT BEDTIME 0.27 MG/KG/DAY (TOTAL: 15.4MG/DAY)
     Route: 048
     Dates: start: 202109
  3. FINTEPLA [Suspect]
     Active Substance: FENFLURAMINE
     Dosage: TAKE 3 ML BY MOUTH EVERY MORNING, 2 ML AT MID DAY AND 3 ML EVERY EVENING (0.30 MG/KG/DAY 17.6 MILLIG
     Route: 048
  4. ZONEGRAN [Concomitant]
     Active Substance: ZONISAMIDE
     Indication: Epilepsy
     Dosage: 75 MILLIGRAM, EVERY BEDTIME
     Dates: start: 2001
  5. DEPAKOTE [Concomitant]
     Active Substance: DIVALPROEX SODIUM
     Indication: Epilepsy
     Dosage: 250 MILLIGRAM, 2X/DAY (BID)
  6. EPIDIOLEX [Concomitant]
     Active Substance: CANNABIDIOL
     Indication: Epilepsy
     Dosage: 600 MILLIGRAM, 2X/DAY (BID)
     Dates: start: 2014
  7. CARNITOR [Concomitant]
     Active Substance: LEVOCARNITINE
     Indication: Nutritional supplementation
     Dosage: UNK
     Dates: start: 2014
  8. CLARITHROMYCIN [Concomitant]
     Active Substance: CLARITHROMYCIN
     Indication: Product used for unknown indication
     Dosage: 100 MILLIGRAM, 2X/DAY (BID)

REACTIONS (5)
  - Tricuspid valve thickening [Not Recovered/Not Resolved]
  - Tricuspid valve incompetence [Not Recovered/Not Resolved]
  - Aortic valve incompetence [Recovered/Resolved]
  - Left atrial enlargement [Not Recovered/Not Resolved]
  - Off label use [Unknown]

NARRATIVE: CASE EVENT DATE: 20210904
